FAERS Safety Report 6755354-8 (Version None)
Quarter: 2010Q2

REPORT INFORMATION
  Report Type: 
  Country: None (occurrence: None)
  Receive Date: 20100604
  Receipt Date: 20100525
  Transmission Date: 20101027
  Serious: Yes (Death, Life-Threatening, Hospitalization)
  Sender: FDA-Public Use
  Company Number: JP-PFIZER INC-2010066558

PATIENT
  Age: 76 Year
  Sex: Male
  Weight: 39.7 kg

DRUGS (6)
  1. SUNITINIB MALATE [Suspect]
     Indication: RENAL CELL CARCINOMA
     Dosage: 50 MG, 1X/DAY
     Route: 048
     Dates: start: 20090901, end: 20091127
  2. KERATINAMIN [Concomitant]
  3. PREDNISOLONE [Concomitant]
     Route: 048
     Dates: start: 20090901
  4. TAKEPRON [Concomitant]
     Route: 048
     Dates: start: 20090901
  5. MUCOSTA [Concomitant]
     Route: 048
     Dates: start: 20090901
  6. FUROSEMIDE [Concomitant]
     Route: 048
     Dates: start: 20090915

REACTIONS (4)
  - CARDIO-RESPIRATORY ARREST [None]
  - FATIGUE [None]
  - MALAISE [None]
  - PLATELET COUNT DECREASED [None]
